FAERS Safety Report 16314172 (Version 1)
Quarter: 2019Q2

REPORT INFORMATION
  Report Type: Report from Study
  Country: KR (occurrence: KR)
  Receive Date: 20190515
  Receipt Date: 20190515
  Transmission Date: 20190711
  Serious: Yes (Hospitalization)
  Sender: FDA-Public Use
  Company Number: KR-ROCHE-2305386

PATIENT
  Age: 62 Year
  Sex: Female
  Weight: 58 kg

DRUGS (6)
  1. CAPECITABINE. [Suspect]
     Active Substance: CAPECITABINE
     Indication: TRIPLE NEGATIVE BREAST CANCER
     Dosage: ON DAYS 1-14 OF EACH 21 DAY CYCLE
     Route: 048
     Dates: start: 20180823
  2. ERIBULIN MESYLATE [Suspect]
     Active Substance: ERIBULIN MESYLATE
     Indication: TRIPLE NEGATIVE BREAST CANCER
     Dosage: DOSE OF LAST STUDY DRUG ERIBULIN MESYLATE ADMINISTERED PRIOR TO AE ONSET 2.2?DATE OF MOST RECENT DOS
     Route: 042
     Dates: start: 20190207
  3. MAGNESIUM OXIDE. [Concomitant]
     Active Substance: MAGNESIUM OXIDE
     Route: 065
     Dates: start: 20180823
  4. STILNOX [Concomitant]
     Active Substance: ZOLPIDEM TARTRATE
     Indication: INSOMNIA
     Route: 065
     Dates: start: 20180823
  5. ATEZOLIZUMAB. [Suspect]
     Active Substance: ATEZOLIZUMAB
     Indication: TRIPLE NEGATIVE BREAST CANCER
     Dosage: DOSE OF LAST STUDY DRUG ATEZOLIZUMAB ADMINISTERED PRIOR TO AE ONSET 1200?DATE OF MOST RECENT DOSE OF
     Route: 042
     Dates: start: 20190207
  6. LACTOBACILLUS CASEI [Concomitant]
     Active Substance: LACTOBACILLUS CASEI
     Route: 065
     Dates: start: 20180823

REACTIONS (1)
  - Acute kidney injury [Recovered/Resolved]

NARRATIVE: CASE EVENT DATE: 20190411
